FAERS Safety Report 8909304 (Version 4)
Quarter: 2013Q1

REPORT INFORMATION
  Report Type: Spontaneous
  Country: US (occurrence: None)
  Receive Date: 20121102
  Receipt Date: 20130117
  Transmission Date: 20140127
  Serious: Yes (Other)
  Sender: FDA-Public Use
  Company Number: 2012033739

PATIENT
  Sex: Male
  Weight: 102.06 kg

DRUGS (1)
  1. HIZENTRA [Suspect]
     Dates: start: 20121021

REACTIONS (8)
  - Drug ineffective [None]
  - Tremor [None]
  - Feeling hot [None]
  - Feeling cold [None]
  - Product quality issue [None]
  - Chills [None]
  - Fatigue [None]
  - Blood immunoglobulin M abnormal [None]
